FAERS Safety Report 11302503 (Version 1)
Quarter: 2015Q3

REPORT INFORMATION
  Report Type: Spontaneous
  Country: DE (occurrence: DE)
  Receive Date: 20150723
  Receipt Date: 20150723
  Transmission Date: 20151125
  Serious: Yes (Other)
  Sender: FDA-Public Use
  Company Number: DE-JNJFOC-20150712749

PATIENT
  Age: 62 Year
  Sex: Female
  Weight: 57 kg

DRUGS (1)
  1. ITRACONAZOL [Suspect]
     Active Substance: ITRACONAZOLE
     Indication: TINEA INFECTION
     Route: 048
     Dates: start: 20150513, end: 20150619

REACTIONS (4)
  - Dyspnoea exertional [Not Recovered/Not Resolved]
  - Pleural effusion [Not Recovered/Not Resolved]
  - Cardiac failure [Not Recovered/Not Resolved]
  - Oedema peripheral [Not Recovered/Not Resolved]

NARRATIVE: CASE EVENT DATE: 201505
